FAERS Safety Report 4845475-9 (Version None)
Quarter: 2005Q4

REPORT INFORMATION
  Report Type: 
  Country: None (occurrence: None)
  Receive Date: 20051201
  Receipt Date: 20051114
  Transmission Date: 20060501
  Serious: Yes (Hospitalization)
  Sender: FDA-Public Use
  Company Number: US200511000224

PATIENT
  Sex: Male
  Weight: 95.2 kg

DRUGS (4)
  1. HUMULIN R [Suspect]
     Indication: DIABETES MELLITUS
     Dosage: 15 U, EACH MORNING, 20 U, EACH EVENING
  2. HUMULIN L [Suspect]
     Indication: DIABETES MELLITUS
     Dosage: 40 U, EACH MORNING, 20 U, EACH EVENING
  3. ILETIN [Suspect]
     Indication: DIABETES MELLITUS
     Dosage: 40 U, EACH MORNING, 20 U, EACH EVENING
     Dates: start: 19610101
  4. ILETIN [Suspect]
     Indication: DIABETES MELLITUS
     Dosage: 15 U, EACH MORNING, 10 U, EACH EVENING
     Dates: start: 19610101

REACTIONS (5)
  - BLOOD GLUCOSE INCREASED [None]
  - CEREBROVASCULAR ACCIDENT [None]
  - MYOCARDIAL INFARCTION [None]
  - QUADRUPLE VESSEL BYPASS GRAFT [None]
  - THINKING ABNORMAL [None]
